FAERS Safety Report 24915321 (Version 1)
Quarter: 2025Q1

REPORT INFORMATION
  Report Type: Report from Study
  Country: GB (occurrence: GB)
  Receive Date: 20250203
  Receipt Date: 20250203
  Transmission Date: 20250409
  Serious: Yes (Other)
  Sender: ABBVIE
  Company Number: GB-ABBVIE-6111810

PATIENT
  Age: 17 Year
  Sex: Female

DRUGS (1)
  1. SKYRIZI [Suspect]
     Active Substance: RISANKIZUMAB-RZAA
     Indication: Crohn^s disease
     Dosage: 360MG/2.4ML
     Route: 058

REACTIONS (4)
  - Clostridium difficile infection [Unknown]
  - Lactose intolerance [Unknown]
  - Gluten sensitivity [Unknown]
  - Frequent bowel movements [Recovering/Resolving]

NARRATIVE: CASE EVENT DATE: 20241101
